FAERS Safety Report 21779944 (Version 5)
Quarter: 2023Q2

REPORT INFORMATION
  Report Type: Report from Study
  Country: US (occurrence: US)
  Receive Date: 20221226
  Receipt Date: 20230407
  Transmission Date: 20230722
  Serious: Yes (Other)
  Sender: FDA-Public Use
  Company Number: US-ABBVIE-4249410

PATIENT
  Sex: Female
  Weight: 113.39 kg

DRUGS (1)
  1. HUMIRA [Suspect]
     Active Substance: ADALIMUMAB
     Indication: Rheumatoid arthritis
     Dosage: CITRATE FREE
     Route: 058
     Dates: start: 2019

REACTIONS (12)
  - Renal failure [Unknown]
  - Arthritis [Unknown]
  - Pain in extremity [Unknown]
  - Unevaluable event [Unknown]
  - Pain [Unknown]
  - Arthralgia [Unknown]
  - Arthralgia [Unknown]
  - Arthralgia [Unknown]
  - Trigger finger [Unknown]
  - Osteoarthritis [Unknown]
  - Psoriasis [Unknown]
  - Fall [Unknown]
